FAERS Safety Report 17571903 (Version 2)
Quarter: 2020Q2

REPORT INFORMATION
  Report Type: Other
  Country: US (occurrence: US)
  Receive Date: 20200323
  Receipt Date: 20200504
  Transmission Date: 20200713
  Serious: Yes (Hospitalization, Other)
  Sender: FDA-Public Use
  Company Number: US-AMAG PHARMACEUTICALS, INC.-AMAG202000989

PATIENT
  Age: 37 Year
  Sex: Female
  Weight: 106.24 kg

DRUGS (3)
  1. INSULIN [Concomitant]
     Active Substance: INSULIN NOS
     Indication: GESTATIONAL DIABETES
  2. BABY ASA [Concomitant]
     Active Substance: ASPIRIN
     Indication: PRODUCT USED FOR UNKNOWN INDICATION
  3. MAKENA [Suspect]
     Active Substance: HYDROXYPROGESTERONE CAPROATE
     Indication: PREMATURE DELIVERY
     Route: 058
     Dates: end: 20200304

REACTIONS (3)
  - Gestational hypertension [Unknown]
  - Gestational diabetes [Unknown]
  - Premature delivery [Recovered/Resolved]

NARRATIVE: CASE EVENT DATE: 20200311
